FAERS Safety Report 14164463 (Version 2)
Quarter: 2018Q3

REPORT INFORMATION
  Report Type: Spontaneous
  Country: US (occurrence: US)
  Receive Date: 20171107
  Receipt Date: 20180706
  Transmission Date: 20181010
  Serious: Yes (Other)
  Sender: FDA-Public Use
  Company Number: US-ASTRAZENECA-2017SF11708

PATIENT
  Age: 42 Year
  Sex: Male
  Weight: 96.2 kg

DRUGS (41)
  1. PRAVACHOL [Concomitant]
     Active Substance: PRAVASTATIN SODIUM
     Route: 048
  2. PROTONIX [Suspect]
     Active Substance: PANTOPRAZOLE SODIUM
     Indication: GASTROOESOPHAGEAL REFLUX DISEASE
     Route: 065
     Dates: start: 2012, end: 2014
  3. AMLODIPINE [Concomitant]
     Active Substance: AMLODIPINE BESYLATE
     Route: 048
  4. LOSARTAN. [Concomitant]
     Active Substance: LOSARTAN
     Route: 048
     Dates: start: 20150129, end: 20150728
  5. LIPITOR [Concomitant]
     Active Substance: ATORVASTATIN CALCIUM
     Route: 048
  6. ROCEPHIN [Concomitant]
     Active Substance: CEFTRIAXONE SODIUM
     Route: 048
     Dates: start: 20110831, end: 20111223
  7. PRILOSEC [Suspect]
     Active Substance: OMEPRAZOLE MAGNESIUM
     Indication: GASTROOESOPHAGEAL REFLUX DISEASE
     Route: 048
     Dates: start: 2012, end: 2014
  8. PRILOSEC [Suspect]
     Active Substance: OMEPRAZOLE MAGNESIUM
     Indication: GASTROOESOPHAGEAL REFLUX DISEASE
     Dosage: 20.0MG UNKNOWN
     Route: 048
     Dates: start: 20150727
  9. SYNTHROID [Concomitant]
     Active Substance: LEVOTHYROXINE SODIUM
     Route: 048
     Dates: start: 20150129, end: 20150728
  10. MINOCYCLINE [Concomitant]
     Active Substance: MINOCYCLINE\MINOCYCLINE HYDROCHLORIDE
     Route: 048
  11. LISINOPRIL. [Concomitant]
     Active Substance: LISINOPRIL
  12. ANTIVERT [Concomitant]
     Active Substance: MECLIZINE HYDROCHLORIDE
     Route: 048
     Dates: start: 20110831, end: 20111223
  13. NORCO [Concomitant]
     Active Substance: ACETAMINOPHEN\HYDROCODONE BITARTRATE
  14. PRILOSEC [Suspect]
     Active Substance: OMEPRAZOLE MAGNESIUM
     Indication: GASTROOESOPHAGEAL REFLUX DISEASE
     Dosage: GENERIC20.0MG UNKNOWN
     Route: 048
     Dates: start: 20131017
  15. SUCRALFATE. [Concomitant]
     Active Substance: SUCRALFATE
     Route: 048
  16. ASPIRIN. [Concomitant]
     Active Substance: ASPIRIN
     Route: 048
  17. INFLUENZA VIRUS VACCINE [Concomitant]
     Active Substance: INFLUENZA VIRUS VACCINE
     Dates: start: 20141017
  18. TORADOL [Concomitant]
     Active Substance: KETOROLAC TROMETHAMINE
     Dosage: 15.0MG UNKNOWN
     Route: 030
  19. PROMETHAZINE [Concomitant]
     Active Substance: PROMETHAZINE\PROMETHAZINE HYDROCHLORIDE
     Dosage: 25.0MG EVERY 4 ? 6 HOURS
  20. PRILOSEC [Suspect]
     Active Substance: OMEPRAZOLE MAGNESIUM
     Indication: GASTROOESOPHAGEAL REFLUX DISEASE
     Dosage: GENERIC20.0MG UNKNOWN
     Route: 048
     Dates: start: 2011, end: 2015
  21. PRILOSEC [Suspect]
     Active Substance: OMEPRAZOLE MAGNESIUM
     Indication: GASTROOESOPHAGEAL REFLUX DISEASE
     Dosage: 20.0MG UNKNOWN
     Route: 048
     Dates: start: 20150727
  22. PRILOSEC [Suspect]
     Active Substance: OMEPRAZOLE MAGNESIUM
     Indication: GASTROOESOPHAGEAL REFLUX DISEASE
     Dosage: GENERIC20.0MG UNKNOWN
     Route: 048
     Dates: start: 20131017
  23. HYDROCODONE?ACETAMINOPHEN [Concomitant]
     Active Substance: ACETAMINOPHEN\HYDROCODONE
     Dosage: 7.5 MG?325 MG
     Route: 048
  24. CELESTONE [Concomitant]
     Active Substance: BETAMETHASONE
     Dosage: UNKNOWN
     Route: 030
  25. DEXAMETHASONE. [Concomitant]
     Active Substance: DEXAMETHASONE
     Dosage: UNKNOWN
     Route: 030
  26. LISINOPRIL?HYDROCHLOROTHIAZIDE [Concomitant]
     Active Substance: HYDROCHLOROTHIAZIDE\LISINOPRIL
     Dosage: 20?12.5 MG
     Route: 048
     Dates: start: 20110614
  27. COZAAR [Concomitant]
     Active Substance: LOSARTAN POTASSIUM
  28. PRILOSEC [Suspect]
     Active Substance: OMEPRAZOLE MAGNESIUM
     Indication: GASTROOESOPHAGEAL REFLUX DISEASE
     Route: 048
     Dates: start: 2012, end: 2014
  29. ZANTAC [Concomitant]
     Active Substance: RANITIDINE HYDROCHLORIDE
     Dosage: 150.0MG UNKNOWN
  30. HCTZ [Concomitant]
     Active Substance: HYDROCHLOROTHIAZIDE
     Route: 048
  31. GABAPENTIN. [Concomitant]
     Active Substance: GABAPENTIN
     Route: 048
  32. AMOXICILLIN. [Concomitant]
     Active Substance: AMOXICILLIN
     Route: 048
  33. VALIUM [Concomitant]
     Active Substance: DIAZEPAM
     Dosage: 2.0MG ONCE/SINGLE ADMINISTRATION
     Route: 042
     Dates: start: 20170313
  34. DILAUDID [Concomitant]
     Active Substance: HYDROMORPHONE HYDROCHLORIDE
     Dosage: 1.0MG UNKNOWN
     Route: 042
     Dates: start: 20170313
  35. PRILOSEC [Suspect]
     Active Substance: OMEPRAZOLE MAGNESIUM
     Indication: GASTROOESOPHAGEAL REFLUX DISEASE
     Dosage: GENERIC20.0MG UNKNOWN
     Route: 048
     Dates: start: 2011, end: 2015
  36. POTASSIUM CHLORIDE. [Concomitant]
     Active Substance: POTASSIUM CHLORIDE
     Route: 048
  37. TESSALON [Concomitant]
     Active Substance: BENZONATATE
     Route: 048
     Dates: start: 20150209, end: 20150219
  38. ZANAFLEX [Concomitant]
     Active Substance: TIZANIDINE HYDROCHLORIDE
     Route: 048
     Dates: start: 20140618
  39. PHENERGAN [Concomitant]
     Active Substance: PROMETHAZINE HYDROCHLORIDE
     Dosage: 25.0MG UNKNOWN
     Route: 030
  40. FLEXERIL [Concomitant]
     Active Substance: CYCLOBENZAPRINE HYDROCHLORIDE
     Route: 048
  41. PENICILLIN V POTASSIUM. [Concomitant]
     Active Substance: PENICILLIN V POTASSIUM
     Dosage: 500.0MG EVERY 4 ? 6 HOURS
     Route: 048

REACTIONS (4)
  - Renal failure [Unknown]
  - Chronic kidney disease [Unknown]
  - Acute kidney injury [Unknown]
  - Hypertensive nephropathy [Unknown]

NARRATIVE: CASE EVENT DATE: 2015
